FAERS Safety Report 9220717 (Version 1)
Quarter: 2013Q2

REPORT INFORMATION
  Report Type: Spontaneous
  Country: US (occurrence: US)
  Receive Date: 20130409
  Receipt Date: 20130409
  Transmission Date: 20140414
  Serious: Yes (Other)
  Sender: FDA-Public Use
  Company Number: US-PFIZER INC-2013107961

PATIENT
  Age: 44 Year
  Sex: Male

DRUGS (1)
  1. ZYVOX [Suspect]
     Indication: LOCALISED INFECTION
     Dosage: UNK
     Dates: start: 2013, end: 2013

REACTIONS (2)
  - Optic neuropathy [Recovered/Resolved]
  - Anaemia [Unknown]
